FAERS Safety Report 23539213 (Version 1)
Quarter: 2024Q1

REPORT INFORMATION
  Report Type: Spontaneous
  Country: CA (occurrence: CA)
  Receive Date: 20240219
  Receipt Date: 20240219
  Transmission Date: 20240410
  Serious: Yes (Other)
  Sender: FDA-Public Use
  Company Number: CA-FreseniusKabi-FK202402569

PATIENT
  Sex: Male

DRUGS (9)
  1. BLEOMYCIN SULFATE [Suspect]
     Active Substance: BLEOMYCIN SULFATE
     Indication: Lymphoma
     Dosage: DOSAGE FORM: INJECTION
     Route: 065
  2. ETOPOSIDE [Suspect]
     Active Substance: ETOPOSIDE
     Indication: Lymphoma
     Dosage: 2 REGIMENS?DOSAGE FORMS: NOT SPECIFIED
     Route: 065
  3. ETOPOSIDE [Suspect]
     Active Substance: ETOPOSIDE
     Dosage: DOSAGE FORM: NOT SPECIFIED
     Route: 065
  4. PREDNISONE [Suspect]
     Active Substance: PREDNISONE
     Indication: Lymphoma
     Dosage: FORM: NOT SPECIFIED?ROUTE: UNKNOWN?FREQUENCY: CYCLICAL
  5. VINCRISTINE SULFATE [Suspect]
     Active Substance: VINCRISTINE SULFATE
     Indication: Lymphoma
     Dosage: FORM: NOT SPECIFIED?ROUTE: UNKNOWN?FREQUENCY: CYCLICAL
  6. DOXORUBICIN HYDROCHLORIDE [Suspect]
     Active Substance: DOXORUBICIN HYDROCHLORIDE
     Indication: Lymphoma
     Dosage: FORM: INJECTION?ROUTE: UNKNOWN?FREQUENCY: CYCLICAL
  7. CIMETIDINE [Concomitant]
     Active Substance: CIMETIDINE
     Indication: Product used for unknown indication
     Dosage: FORM: NOT SPECIFIED
  8. SULFAMETHOXAZOLE\TRIMETHOPRIM [Concomitant]
     Active Substance: SULFAMETHOXAZOLE\TRIMETHOPRIM
     Indication: Product used for unknown indication
     Dosage: FORM: NOT SPECIFIED
  9. KETOCONAZOLE [Concomitant]
     Active Substance: KETOCONAZOLE
     Indication: Product used for unknown indication
     Dosage: FORM: NOT SPECIFIED

REACTIONS (1)
  - Toxicity to various agents [Unknown]
